FAERS Safety Report 8474422-6 (Version None)
Quarter: 2012Q2

REPORT INFORMATION
  Report Type: 
  Country: None (occurrence: None)
  Receive Date: 20120628
  Receipt Date: 20120621
  Transmission Date: 20120825
  Serious: Yes (Hospitalization, Other)
  Sender: FDA-Public Use
  Company Number: PHHY2012BR054084

PATIENT
  Sex: Female

DRUGS (5)
  1. ASPIRIN [Concomitant]
     Dosage: UNK UKN, QD
  2. FORMOTEROL FUMARATE [Suspect]
     Indication: DYSPNOEA
     Dosage: UNK UKN, BID
  3. ROSUVASTATIN [Concomitant]
     Dosage: UNK UKN, QD
  4. VENLAFAXINE HYDROCHOLRIDE [Concomitant]
     Dosage: UNK UKN, QD
  5. METFORMIN HCL [Concomitant]
     Dosage: UNK UKN, QD

REACTIONS (2)
  - VOMITING [None]
  - MALAISE [None]
